FAERS Safety Report 5343786-4 (Version None)
Quarter: 2007Q2

REPORT INFORMATION
  Report Type: 
  Country: None (occurrence: None)
  Receive Date: 20070604
  Receipt Date: 20070525
  Transmission Date: 20071010
  Serious: Yes (Hospitalization, Disabling, Other)
  Sender: FDA-Public Use
  Company Number: PL-AMGEN-UK209712

PATIENT
  Sex: Male

DRUGS (2)
  1. PANITUMUMAB [Suspect]
     Indication: COLORECTAL CANCER
     Route: 042
     Dates: start: 20061108, end: 20070221
  2. MEGESTROL ACETATE [Suspect]

REACTIONS (4)
  - ANOREXIA [None]
  - FATIGUE [None]
  - LUNG ABSCESS [None]
  - VENOUS THROMBOSIS [None]
